FAERS Safety Report 10235644 (Version 2)
Quarter: 2014Q2

REPORT INFORMATION
  Report Type: Spontaneous
  Country: US (occurrence: US)
  Receive Date: 20140613
  Receipt Date: 20140613
  Transmission Date: 20141212
  Serious: Yes (Other)
  Sender: FDA-Public Use
  Company Number: CHPA2013US014663

PATIENT
  Sex: Female

DRUGS (3)
  1. VOLTAREN GEL [Suspect]
     Indication: ARTHRITIS
     Dosage: SOME FROM FINGER, UNK
     Route: 061
     Dates: start: 20130923
  2. VOLTAREN GEL [Suspect]
     Dosage: UNK
     Route: 065
  3. ASPIRIN [Concomitant]
     Dosage: 325 MG, QD

REACTIONS (4)
  - Wrist fracture [Unknown]
  - Weight decreased [Unknown]
  - Accidental exposure to product [Unknown]
  - Inappropriate schedule of drug administration [Unknown]
